FAERS Safety Report 12552986 (Version 1)
Quarter: 2016Q3

REPORT INFORMATION
  Report Type: Other
  Country: None (occurrence: US)
  Receive Date: 20160713
  Receipt Date: 20160713
  Transmission Date: 20161109
  Serious: Yes (Other)
  Sender: FDA-Public Use
  Company Number: US-GUTHY-RENKER LLC-1055005

PATIENT
  Age: 49 Year
  Sex: Female

DRUGS (1)
  1. IT COSMETICS BYE BYE FOUNDATION SPF 50+ [Suspect]
     Active Substance: TITANIUM DIOXIDE\ZINC OXIDE
     Indication: PROPHYLAXIS AGAINST SOLAR RADIATION
     Route: 061
     Dates: start: 20160621

REACTIONS (2)
  - Urticaria [None]
  - Anaphylactic reaction [Recovered/Resolved]

NARRATIVE: CASE EVENT DATE: 20160621
